FAERS Safety Report 4987276-7 (Version None)
Quarter: 2006Q2

REPORT INFORMATION
  Report Type: 
  Country: None (occurrence: None)
  Receive Date: 20060501
  Receipt Date: 20060103
  Transmission Date: 20061013
  Serious: Yes (Hospitalization)
  Sender: FDA-Public Use
  Company Number: US-MERCK-0601USA00264

PATIENT
  Age: 59 Year
  Sex: Female
  Weight: 75 kg

DRUGS (9)
  1. VIOXX [Suspect]
     Indication: OSTEOARTHRITIS
     Route: 048
     Dates: start: 20040204, end: 20041011
  2. CRESTOR [Concomitant]
     Route: 065
  3. EVISTA [Concomitant]
     Route: 065
  4. NEXIUM [Concomitant]
     Route: 065
  5. GLUCOPHAGE [Concomitant]
     Route: 065
  6. PREMARIN [Concomitant]
     Route: 065
  7. EFFEXOR [Concomitant]
     Route: 065
  8. SKELAXIN [Concomitant]
     Route: 065
  9. ULTRACET [Concomitant]
     Route: 065

REACTIONS (7)
  - ACUTE SINUSITIS [None]
  - BACK INJURY [None]
  - CEREBROVASCULAR ACCIDENT [None]
  - DRUG INEFFECTIVE [None]
  - HYPERLIPIDAEMIA [None]
  - VARICOSE VEIN [None]
  - VENTRICULAR HYPOKINESIA [None]
